FAERS Safety Report 8367353-3 (Version None)
Quarter: 2012Q2

REPORT INFORMATION
  Report Type: 
  Country: None (occurrence: None)
  Receive Date: 20120517
  Receipt Date: 20120511
  Transmission Date: 20120825
  Serious: Yes (Hospitalization)
  Sender: FDA-Public Use
  Company Number: US-BAYER-2012-047263

PATIENT
  Age: 39 Year
  Sex: Female
  Weight: 97.959 kg

DRUGS (13)
  1. AMOXICILLIN [Concomitant]
     Dosage: 500 MG, UNK
  2. DEXAMETHASONE [Concomitant]
     Dosage: 3 DROPS
     Route: 045
  3. ERYTHROMYCIN [Concomitant]
     Dosage: 500 MG, UNK
  4. YASMIN [Suspect]
     Indication: MENORRHAGIA
     Dosage: UNK
     Dates: start: 20060701, end: 20080701
  5. TRAMADOL HYDROCHLORIDE [Concomitant]
     Dosage: 50 MG, UNK
  6. PREDNISONE TAB [Concomitant]
     Dosage: 10 MG, UNK
  7. DROSPIRENONE AND ETHINYL ESTRADIOL [Suspect]
     Indication: UTERINE LEIOMYOMA
  8. DROSPIRENONE AND ETHINYL ESTRADIOL [Suspect]
     Indication: MENORRHAGIA
     Dosage: UNK
     Dates: start: 20080701, end: 20100201
  9. CYCLOBENZAPRINE [Concomitant]
     Dosage: 10 MG, UNK
  10. YASMIN [Suspect]
     Indication: UTERINE LEIOMYOMA
  11. NAPROSYN [Concomitant]
  12. CLARITHROMYCIN [Concomitant]
     Dosage: 500 MG, UNK
  13. ULTRAM [Concomitant]

REACTIONS (2)
  - DEEP VEIN THROMBOSIS [None]
  - PULMONARY EMBOLISM [None]
